FAERS Safety Report 19617129 (Version 1)
Quarter: 2021Q3

REPORT INFORMATION
  Report Type: Spontaneous
  Country: US (occurrence: US)
  Receive Date: 20210727
  Receipt Date: 20210727
  Transmission Date: 20211014
  Serious: No
  Sender: FDA-Public Use
  Company Number: US-ABBVIE-21K-163-3781661-00

PATIENT
  Age: 81 Year
  Sex: Female
  Weight: 59.47 kg

DRUGS (3)
  1. OXY POWDER [Concomitant]
     Indication: SUPPLEMENTATION THERAPY
  2. SYNTHROID [Suspect]
     Active Substance: LEVOTHYROXINE SODIUM
     Indication: THYROID DISORDER
     Route: 048
     Dates: start: 202101
  3. MAGNESIUM COMPLEX [Concomitant]
     Active Substance: MAGNESIUM CHLORIDE\MAGNESIUM GLUCONATE
     Indication: SUPPLEMENTATION THERAPY

REACTIONS (7)
  - Vision blurred [Not Recovered/Not Resolved]
  - Alopecia [Not Recovered/Not Resolved]
  - Anxiety [Not Recovered/Not Resolved]
  - Memory impairment [Not Recovered/Not Resolved]
  - Abdominal distension [Not Recovered/Not Resolved]
  - Constipation [Not Recovered/Not Resolved]
  - Stress [Not Recovered/Not Resolved]

NARRATIVE: CASE EVENT DATE: 202101
